FAERS Safety Report 8270912-X (Version None)
Quarter: 2012Q2

REPORT INFORMATION
  Report Type: 
  Country: None (occurrence: None)
  Receive Date: 20120410
  Receipt Date: 20120403
  Transmission Date: 20120825
  Serious: Yes (Other)
  Sender: FDA-Public Use
  Company Number: US-PFIZER INC-2012085000

PATIENT
  Sex: Female

DRUGS (6)
  1. KLONOPIN [Concomitant]
     Dosage: UNK
  2. PRISTIQ [Suspect]
     Dosage: 100 MG, 1X/DAY
  3. SEROQUEL [Concomitant]
     Dosage: UNK
  4. LAMICTAL [Concomitant]
     Dosage: UNK
  5. ATARAX [Concomitant]
     Dosage: UNK
  6. LEVOTHYROXINE SODIUM [Concomitant]
     Dosage: UNK

REACTIONS (9)
  - BORDERLINE PERSONALITY DISORDER [None]
  - MAJOR DEPRESSION [None]
  - MENTAL DISORDER [None]
  - ACTIVITIES OF DAILY LIVING IMPAIRED [None]
  - POST-TRAUMATIC STRESS DISORDER [None]
  - PANIC ATTACK [None]
  - MEMORY IMPAIRMENT [None]
  - MOTOR DYSFUNCTION [None]
  - SOCIAL PHOBIA [None]
